FAERS Safety Report 8054956-9 (Version None)
Quarter: 2012Q1

REPORT INFORMATION
  Report Type: 
  Country: None (occurrence: None)
  Receive Date: 20120119
  Receipt Date: 20120113
  Transmission Date: 20120608
  Serious: Yes (Death, Other)
  Sender: FDA-Public Use
  Company Number: HU-CELGENEUS-076-21880-11112194

PATIENT
  Sex: Female
  Weight: 56 kg

DRUGS (22)
  1. CITALOPRAM HYDROBROMIDE [Concomitant]
     Indication: DEPRESSION
     Dosage: 10 MILLIGRAM
     Route: 048
     Dates: start: 20111013
  2. BISOPROLOL FUMARATE [Concomitant]
     Indication: ATRIAL FIBRILLATION
     Dosage: 5 MILLIGRAM
     Route: 048
     Dates: start: 20100801
  3. REFLUXON [Concomitant]
     Indication: GASTRITIS PROPHYLAXIS
     Dosage: 15 MILLIGRAM
     Route: 048
     Dates: start: 20110804
  4. FUROSEMIDE [Concomitant]
     Indication: ATRIAL FIBRILLATION
     Dosage: 40 MILLIGRAM
     Route: 048
     Dates: start: 20100924
  5. DEXAMETHASONE TAB [Suspect]
     Indication: MULTIPLE MYELOMA
     Route: 065
     Dates: start: 20110804, end: 20111103
  6. HERPESIN [Concomitant]
     Indication: ANTIVIRAL PROPHYLAXIS
     Dosage: 800 MILLIGRAM
     Route: 048
     Dates: start: 20110804
  7. SYNCUMAR [Concomitant]
     Indication: ATRIAL FIBRILLATION
     Dosage: .5 MILLIGRAM
     Route: 048
     Dates: start: 20110401
  8. ZOMETA [Concomitant]
     Indication: PROPHYLAXIS
     Route: 041
  9. REVLIMID [Suspect]
     Dosage: 25 MILLIGRAM
     Route: 048
     Dates: start: 20110901, end: 20110921
  10. REVLIMID [Suspect]
     Dosage: 25 MILLIGRAM
     Route: 048
     Dates: start: 20111027, end: 20111108
  11. CALCIUM CITRATE [Concomitant]
  12. COLECALCIFEROL [Concomitant]
     Indication: OSTEOPOROSIS
     Dosage: 400 MILLIGRAM
     Route: 048
     Dates: start: 20110804
  13. DEXAMETHASONE TAB [Suspect]
     Route: 065
     Dates: start: 20111027, end: 20111103
  14. CALCIUM CITRATE [Concomitant]
     Indication: OSTEOPOROSIS
     Dosage: 1000 MILLIGRAM
     Route: 048
     Dates: start: 20110804
  15. SYNCUMAR [Concomitant]
     Indication: ANTICOAGULANT THERAPY
  16. ARANESP [Concomitant]
     Indication: ANAEMIA
     Dosage: 23.8095 MICROGRAM
     Route: 058
     Dates: start: 20111027
  17. BISOPROLOL FUMARATE [Concomitant]
     Dosage: 2.5 MILLIGRAM
     Route: 048
     Dates: start: 20100801, end: 20111013
  18. TRAMADOL HCL [Concomitant]
     Dosage: 300 MILLIGRAM
     Route: 048
     Dates: start: 20111027
  19. KALDYUM [Concomitant]
     Indication: ATRIAL FIBRILLATION
     Dosage: 600 MILLIGRAM
     Route: 048
     Dates: start: 20100924
  20. ZOMETA [Concomitant]
     Dosage: .1333 MILLIGRAM
     Route: 041
     Dates: start: 20110804
  21. REVLIMID [Suspect]
     Indication: MULTIPLE MYELOMA
     Dosage: 25 MILLIGRAM
     Route: 048
     Dates: start: 20110804, end: 20110824
  22. SYNCUMAR [Concomitant]
     Indication: PULMONARY EMBOLISM
     Dosage: .5 MILLIGRAM
     Route: 048
     Dates: start: 20110804

REACTIONS (1)
  - SEPSIS [None]
